FAERS Safety Report 5549512-8 (Version None)
Quarter: 2007Q4

REPORT INFORMATION
  Report Type: 
  Country: None (occurrence: None)
  Receive Date: 20071212
  Receipt Date: 20071203
  Transmission Date: 20080405
  Serious: Yes (Death, Hospitalization)
  Sender: FDA-Public Use
  Company Number: PHBS2007US20319

PATIENT
  Age: 38 Year
  Sex: Female

DRUGS (3)
  1. CYCLOSPORINE [Suspect]
     Indication: LIVER TRANSPLANT
     Dosage: 125 MG/DAY
     Route: 065
     Dates: start: 19890101
  2. AZATHIOPRINE [Suspect]
     Indication: LIVER TRANSPLANT
     Dosage: 75 MG/DAY
     Route: 065
     Dates: start: 19890101
  3. PREDNISONE [Suspect]
     Indication: LIVER TRANSPLANT
     Dosage: 7.5 MG/DAY
     Route: 065
     Dates: start: 19890101

REACTIONS (5)
  - ANAPLASTIC LARGE CELL LYMPHOMA T- AND NULL-CELL TYPES [None]
  - CYTOMEGALOVIRUS INFECTION [None]
  - MYOCARDIAL INFARCTION [None]
  - OEDEMA PERIPHERAL [None]
  - RESPIRATORY FAILURE [None]
